FAERS Safety Report 7320679-4 (Version None)
Quarter: 2011Q1

REPORT INFORMATION
  Report Type: 
  Country: None (occurrence: None)
  Receive Date: 20110228
  Receipt Date: 20110216
  Transmission Date: 20110831
  Serious: Yes (Other)
  Sender: FDA-Public Use
  Company Number: US-ROCHE-735301

PATIENT
  Sex: Male
  Weight: 95.3 kg

DRUGS (3)
  1. ACCUTANE [Suspect]
     Route: 065
     Dates: start: 20020101, end: 20030101
  2. ACCUTANE [Suspect]
     Route: 065
     Dates: start: 20030101, end: 20030601
  3. ACCUTANE [Suspect]
     Indication: ACNE
     Route: 065
     Dates: start: 20010101, end: 20020101

REACTIONS (5)
  - GASTROINTESTINAL INJURY [None]
  - CROHN'S DISEASE [None]
  - INGUINAL HERNIA [None]
  - COLITIS ULCERATIVE [None]
  - INFLAMMATORY BOWEL DISEASE [None]
